FAERS Safety Report 4324598-7 (Version None)
Quarter: 2004Q1

REPORT INFORMATION
  Report Type: 
  Country: None (occurrence: None)
  Receive Date: 20040325
  Receipt Date: 20040325
  Transmission Date: 20041129
  Serious: Yes (Hospitalization)
  Sender: FDA-Public Use
  Company Number: None

PATIENT
  Age: 51 Year
  Sex: Female

DRUGS (4)
  1. CO-TRIMOXAZOLE 160/800MG [Suspect]
     Indication: URINARY TRACT INFECTION
     Dosage: 1 TAB PO BID X 1 DOSE
     Route: 048
     Dates: start: 20040214
  2. PHENAZOPYRIDINE HCL TAB [Concomitant]
  3. ESTROGEN [Concomitant]
  4. SIMVASTATIN [Concomitant]

REACTIONS (2)
  - RESPIRATORY DISTRESS [None]
  - URTICARIA [None]
